FAERS Safety Report 8793449 (Version 2)
Quarter: 2013Q4

REPORT INFORMATION
  Report Type: Spontaneous
  Country: US (occurrence: US)
  Receive Date: 20120918
  Receipt Date: 20131101
  Transmission Date: 20140711
  Serious: No
  Sender: FDA-Public Use
  Company Number: US-009507513-1208USA008185

PATIENT
  Age: 51 Year
  Sex: Female

DRUGS (6)
  1. PEGINTRON [Suspect]
     Indication: HEPATITIS C
     Dosage: 80 MICROGRAM, UNK
     Route: 058
     Dates: start: 20120714
  2. REBETOL [Suspect]
     Dosage: 400 MG, BID(400MG IN THE MORNING AND 400 MG IN THE EVENING
     Route: 048
     Dates: start: 20120714
  3. NEURONTIN [Concomitant]
     Dosage: 800 MG, TID
  4. AMBIEN [Concomitant]
     Dosage: 5 MG, UNK
  5. GLIMEPIRIDE [Concomitant]
     Dosage: 4 MG, UNK
  6. PERCOCET [Concomitant]
     Dosage: 10 MG, UNK

REACTIONS (1)
  - Depression [Not Recovered/Not Resolved]
